FAERS Safety Report 13873670 (Version 1)
Quarter: 2017Q3

REPORT INFORMATION
  Report Type: Report from Study
  Country: None (occurrence: FR)
  Receive Date: 20170816
  Receipt Date: 20170816
  Transmission Date: 20171127
  Serious: Yes (Hospitalization)
  Sender: FDA-Public Use
  Company Number: FR-ABBVIE-14P-056-1283254-00

PATIENT
  Age: 72 Year
  Sex: Male
  Weight: 85 kg

DRUGS (27)
  1. VENETOCLAX. [Suspect]
     Active Substance: VENETOCLAX
     Indication: PLASMA CELL MYELOMA
     Route: 048
     Dates: start: 20140617, end: 20140930
  2. BORTEZOMIB [Suspect]
     Active Substance: BORTEZOMIB
     Indication: PLASMA CELL MYELOMA
     Dosage: DAYS 1, 4, 8 AND 11
     Route: 058
     Dates: start: 20140617, end: 20140926
  3. ORACILLINE [Concomitant]
     Active Substance: PENICILLIN V
     Indication: ANTIBIOTIC PROPHYLAXIS
     Route: 048
     Dates: start: 2007
  4. LEDERFOLINE [Concomitant]
     Active Substance: LEUCOVORIN CALCIUM
     Indication: PROPHYLAXIS
     Route: 048
     Dates: start: 2007
  5. OMEPRAZOLE. [Concomitant]
     Active Substance: OMEPRAZOLE
     Indication: OESOPHAGITIS
     Route: 048
     Dates: start: 2007
  6. LYTOS [Concomitant]
     Active Substance: CLODRONATE DISODIUM
     Indication: PROPHYLAXIS
  7. IPRATROPIUM BROMIDE\FENOTEROL HYDROBROMIDE [Concomitant]
     Active Substance: FENOTEROL HYDROBROMIDE\IPRATROPIUM BROMIDE
     Indication: BRONCHITIS CHRONIC
     Dosage: 50/20MCG
     Route: 055
     Dates: start: 2010
  8. LASILIX [Concomitant]
     Active Substance: FUROSEMIDE
     Indication: CARDIAC FAILURE
     Route: 048
     Dates: start: 20140620
  9. DIFFU K [Concomitant]
     Active Substance: POTASSIUM CHLORIDE
     Indication: BRONCHITIS
     Dates: start: 201407, end: 201408
  10. ALLOPURINOL. [Concomitant]
     Active Substance: ALLOPURINOL
     Indication: PROPHYLAXIS
  11. INEXIUM [Concomitant]
     Active Substance: ESOMEPRAZOLE
     Indication: GASTROOESOPHAGEAL REFLUX PROPHYLAXIS
     Route: 048
     Dates: start: 2010
  12. TOPALGIC [TRAMADOL HYDROCHLORIDE] [Concomitant]
     Active Substance: TRAMADOL HYDROCHLORIDE
     Indication: BONE PAIN
     Route: 048
     Dates: start: 20140605
  13. RASBURICASE [Concomitant]
     Active Substance: RASBURICASE
     Indication: PROPHYLAXIS
  14. NORMAL SALINE SOLUTION [Concomitant]
     Indication: PROPHYLAXIS
  15. DEXAMETHASONE. [Suspect]
     Active Substance: DEXAMETHASONE
     Indication: PLASMA CELL MYELOMA
     Dosage: DAYS 1, 2, 4, 5, 8, 9, 11 AND 12
     Route: 048
     Dates: start: 20140617, end: 20140625
  16. DEXAMETHASONE. [Suspect]
     Active Substance: DEXAMETHASONE
     Dosage: DAYS 1, 2, 4, 5, 8, 9, 11 AND 12
     Route: 048
     Dates: start: 20140708, end: 20140910
  17. BACTRIM [Concomitant]
     Active Substance: SULFAMETHOXAZOLE\TRIMETHOPRIM
     Indication: ANTIBIOTIC PROPHYLAXIS
     Route: 048
     Dates: start: 2007
  18. LYTOS [Concomitant]
     Active Substance: CLODRONATE DISODIUM
     Indication: HYPERGLYCAEMIA
     Route: 048
     Dates: start: 2012
  19. OMEPRAZOLE. [Concomitant]
     Active Substance: OMEPRAZOLE
     Indication: PROPHYLAXIS
  20. AUGMENTIN [Concomitant]
     Active Substance: AMOXICILLIN\CLAVULANATE POTASSIUM
     Indication: BRONCHITIS
     Route: 048
     Dates: start: 201408, end: 201408
  21. RASBURICASE [Concomitant]
     Active Substance: RASBURICASE
     Indication: TUMOUR LYSIS SYNDROME
     Route: 042
     Dates: start: 20140616, end: 20140617
  22. NORMAL SALINE SOLUTION [Concomitant]
     Indication: TUMOUR LYSIS SYNDROME
     Dates: start: 20140616, end: 20140618
  23. LOVENOX [Concomitant]
     Active Substance: ENOXAPARIN SODIUM
     Indication: THROMBOSIS PROPHYLAXIS
     Route: 058
  24. FORLAX [Concomitant]
     Active Substance: POLYETHYLENE GLYCOL 4000
     Indication: CONSTIPATION
     Dosage: 1 POUCH
     Route: 048
     Dates: start: 20140708
  25. ALLOPURINOL. [Concomitant]
     Active Substance: ALLOPURINOL
     Indication: TUMOUR LYSIS SYNDROME
     Route: 048
     Dates: start: 20140615, end: 20140919
  26. ZELITREX [Concomitant]
     Active Substance: VALACYCLOVIR HYDROCHLORIDE
     Indication: ANTIVIRAL PROPHYLAXIS
     Route: 048
     Dates: start: 2007
  27. FUROSEMIDE. [Concomitant]
     Active Substance: FUROSEMIDE
     Indication: BRONCHITIS
     Route: 048
     Dates: start: 201407, end: 201408

REACTIONS (2)
  - Respiratory failure [Not Recovered/Not Resolved]
  - Cardiac failure [Not Recovered/Not Resolved]

NARRATIVE: CASE EVENT DATE: 20140911
